FAERS Safety Report 9176844 (Version 2)
Quarter: 2013Q1

REPORT INFORMATION
  Report Type: Spontaneous
  Country: VE (occurrence: VE)
  Receive Date: 20130321
  Receipt Date: 20130322
  Transmission Date: 20140127
  Serious: Yes (Hospitalization)
  Sender: FDA-Public Use
  Company Number: PHHY2013VE025907

PATIENT
  Age: 17 Month
  Sex: Male
  Weight: 10 kg

DRUGS (2)
  1. CATAFLAM [Suspect]
     Indication: PYREXIA
     Dosage: 10 DRP, UNK
     Route: 048
     Dates: start: 20130312, end: 20130313
  2. CATAFLAM [Suspect]
     Dosage: 8 DRP, UNK
     Route: 048
     Dates: start: 20130313, end: 20130313

REACTIONS (4)
  - Febrile convulsion [Recovered/Resolved]
  - Epstein-Barr virus infection [Recovered/Resolved]
  - Hypothermia [Recovered/Resolved]
  - Pyrexia [Recovered/Resolved]
